FAERS Safety Report 20866839 (Version 1)
Quarter: 2022Q2

REPORT INFORMATION
  Report Type: Other
  Country: CN (occurrence: CN)
  Receive Date: 20220524
  Receipt Date: 20220524
  Transmission Date: 20220721
  Serious: Yes (Other)
  Sender: FDA-Public Use
  Company Number: CN-GE HEALTHCARE-2022CSU003424

PATIENT
  Age: 55 Year
  Sex: Male
  Weight: 65 kg

DRUGS (2)
  1. OMNIPAQUE [Suspect]
     Active Substance: IOHEXOL
     Indication: Angiogram
     Dosage: 70 ML, SINGLE
     Route: 042
     Dates: start: 20220513, end: 20220513
  2. OMNIPAQUE [Suspect]
     Active Substance: IOHEXOL
     Indication: Chest discomfort

REACTIONS (4)
  - Laryngeal obstruction [Recovering/Resolving]
  - Nasal obstruction [Recovering/Resolving]
  - Flushing [Recovering/Resolving]
  - Oedema [Recovering/Resolving]

NARRATIVE: CASE EVENT DATE: 20220513
